FAERS Safety Report 10667127 (Version 1)
Quarter: 2014Q4

REPORT INFORMATION
  Report Type: Spontaneous
  Country: US (occurrence: None)
  Receive Date: 20141219
  Receipt Date: 20141219
  Transmission Date: 20150529
  Serious: No
  Sender: FDA-Public Use
  Company Number: None

PATIENT
  Age: 67 Year
  Sex: Female
  Weight: 54.43 kg

DRUGS (1)
  1. SLEEP AID [Suspect]
     Active Substance: DIPHENHYDRAMINE HYDROCHLORIDE\DOXYLAMINE SUCCINATE
     Indication: INSOMNIA
     Dosage: 1/4  ONCE DAILY TAKEN BY MOUTH
     Route: 048
     Dates: start: 20141001, end: 20141201

REACTIONS (2)
  - Dry mouth [None]
  - Dry skin [None]

NARRATIVE: CASE EVENT DATE: 20141210
